FAERS Safety Report 5302780-X (Version None)
Quarter: 2007Q2

REPORT INFORMATION
  Report Type: 
  Country: None (occurrence: None)
  Receive Date: 20070419
  Receipt Date: 20070413
  Transmission Date: 20071010
  Serious: Yes (Hospitalization, Other)
  Sender: FDA-Public Use
  Company Number: US-MERCK-0704USA02883

PATIENT
  Sex: Male

DRUGS (2)
  1. INVANZ [Suspect]
     Route: 065
  2. [THERAPY UNSPECIFIED] [Concomitant]
     Route: 065

REACTIONS (1)
  - ADVERSE EVENT [None]
